FAERS Safety Report 9636179 (Version 1)
Quarter: 2013Q4

REPORT INFORMATION
  Report Type: Spontaneous
  Country: BR (occurrence: None)
  Receive Date: 20131017
  Receipt Date: 20131017
  Transmission Date: 20140711
  Serious: Yes (Other)
  Sender: FDA-Public Use
  Company Number: INT_00319_2013

PATIENT
  Age: 6 Year
  Sex: Male

DRUGS (1)
  1. VUMON [Suspect]
     Indication: NEUROBLASTOMA
     Dates: start: 20130924

REACTIONS (3)
  - Pruritus generalised [None]
  - Lip swelling [None]
  - Infusion related reaction [None]
